FAERS Safety Report 25659214 (Version 1)
Quarter: 2025Q3

REPORT INFORMATION
  Report Type: Spontaneous
  Country: EU (occurrence: EU)
  Receive Date: 20250808
  Receipt Date: 20250808
  Transmission Date: 20251021
  Serious: Yes (Life-Threatening, Hospitalization, Other)
  Sender: BRISTOL-MYERS SQUIBB COMPANY
  Company Number: None

PATIENT
  Age: 71 Year
  Sex: Male

DRUGS (4)
  1. OPDIVO [Suspect]
     Active Substance: NIVOLUMAB
     Indication: Renal cancer stage IV
     Dosage: 480 MG EVERY 28 DAYS; FIRST 4 CYCLES ASSOCIATED WITH IPILIMUMAB
     Route: 042
     Dates: start: 20220513, end: 20250214
  2. NELVUTAMIG [Suspect]
     Active Substance: NELVUTAMIG
     Indication: Renal cancer stage IV
     Dates: start: 20220513
  3. DUPIXENT [Suspect]
     Active Substance: DUPILUMAB
     Indication: Autoimmune dermatitis
     Route: 058
     Dates: start: 20241209, end: 20250310
  4. CISPLATIN [Concomitant]
     Active Substance: CISPLATIN
     Indication: Chemotherapy

REACTIONS (2)
  - Pemphigoid [Recovering/Resolving]
  - Arthritis [Recovering/Resolving]

NARRATIVE: CASE EVENT DATE: 20241001
